FAERS Safety Report 18626834 (Version 1)
Quarter: 2020Q4

REPORT INFORMATION
  Report Type: Spontaneous
  Country: US (occurrence: US)
  Receive Date: 20201215
  Receipt Date: 20201215
  Transmission Date: 20210114
  Serious: Yes (Hospitalization)
  Sender: FDA-Public Use
  Company Number: None

PATIENT
  Age: 49 Year
  Sex: Female

DRUGS (17)
  1. DOXYCYC MONO [Concomitant]
     Active Substance: DOXYCYCLINE
  2. CENTRUM [Concomitant]
     Active Substance: VITAMINS
  3. CLONAZEPAM. [Concomitant]
     Active Substance: CLONAZEPAM
  4. GARLIC. [Concomitant]
     Active Substance: GARLIC
  5. TRAMADOL. [Concomitant]
     Active Substance: TRAMADOL
  6. LEVOTHYROXIN [Concomitant]
     Active Substance: LEVOTHYROXINE
  7. TECFIDERA [Concomitant]
     Active Substance: DIMETHYL FUMARATE
  8. FISH OIL [Concomitant]
     Active Substance: FISH OIL
  9. DIMETHYL FUMARATE 240MG [Suspect]
     Active Substance: DIMETHYL FUMARATE
     Indication: MULTIPLE SCLEROSIS
     Route: 048
     Dates: start: 202009
  10. BACLOFEN. [Concomitant]
     Active Substance: BACLOFEN
  11. CEPHALEXIN. [Concomitant]
     Active Substance: CEPHALEXIN
  12. METRONIDAZOL [Concomitant]
     Active Substance: METRONIDAZOLE
  13. VITAMIN B12 [Concomitant]
     Active Substance: CYANOCOBALAMIN
  14. COENZYME Q10 [Concomitant]
     Active Substance: DIETARY SUPPLEMENT\UBIDECARENONE
  15. NIACIN. [Concomitant]
     Active Substance: NIACIN
  16. SMZ/TMP [Concomitant]
     Active Substance: SULFAMETHOXAZOLE\TRIMETHOPRIM
  17. NITROFUANTN [Concomitant]

REACTIONS (2)
  - Bedridden [None]
  - Therapy interrupted [None]

NARRATIVE: CASE EVENT DATE: 20201208
